FAERS Safety Report 12640485 (Version 1)
Quarter: 2016Q3

REPORT INFORMATION
  Report Type: Report from Study
  Country: US (occurrence: US)
  Receive Date: 20160810
  Receipt Date: 20160810
  Transmission Date: 20161109
  Serious: Yes (Hospitalization, Other)
  Sender: FDA-Public Use
  Company Number: US-AMGEN-USASL2016102824

PATIENT
  Age: 69 Year
  Sex: Female

DRUGS (3)
  1. PREDNISONE. [Concomitant]
     Active Substance: PREDNISONE
     Dosage: 5 MG, QD
     Dates: start: 201607
  2. ENBREL [Suspect]
     Active Substance: ETANERCEPT
     Indication: RHEUMATOID ARTHRITIS
     Dosage: 50 MG, QWK
     Route: 065
     Dates: start: 201602
  3. METHOTREXATE. [Concomitant]
     Active Substance: METHOTREXATE
     Dosage: UNK

REACTIONS (7)
  - Hip surgery [Unknown]
  - Gait disturbance [Unknown]
  - Finger deformity [Unknown]
  - Grip strength decreased [Unknown]
  - Pain [Unknown]
  - Foot deformity [Unknown]
  - Hand deformity [Unknown]

NARRATIVE: CASE EVENT DATE: 2016
